FAERS Safety Report 11976473 (Version 6)
Quarter: 2016Q1

REPORT INFORMATION
  Report Type: Spontaneous
  Country: JP (occurrence: JP)
  Receive Date: 20160129
  Receipt Date: 20160309
  Transmission Date: 20160526
  Serious: Yes (Death, Hospitalization)
  Sender: FDA-Public Use
  Company Number: JP-ELI_LILLY_AND_COMPANY-JP201601008312

PATIENT
  Age: 65 Year
  Sex: Male
  Weight: 40 kg

DRUGS (23)
  1. SAWACILLIN [Suspect]
     Active Substance: AMOXICILLIN
     Indication: PNEUMONIA
     Dosage: 250 MG, BID
     Route: 048
     Dates: start: 20160126, end: 20160201
  2. ATROPIN                            /00002801/ [Concomitant]
     Dosage: UNK
     Route: 042
     Dates: start: 20160210, end: 20160210
  3. TRYPTANOL                          /00002202/ [Concomitant]
     Active Substance: AMITRIPTYLINE
     Indication: ANXIETY
     Dosage: 20 MG, QD
     Route: 048
     Dates: end: 20160213
  4. MAGLAX [Concomitant]
     Active Substance: MAGNESIUM OXIDE
     Dosage: 660 MG, TID
  5. DICLOFENAC [Concomitant]
     Active Substance: DICLOFENAC
     Indication: CANCER PAIN
     Dosage: 37.5 MG, TID
     Route: 048
     Dates: end: 20160127
  6. POLAPREZINC [Concomitant]
     Active Substance: POLAPREZINC
     Dosage: 0.5 G, BID
     Route: 048
     Dates: start: 20160121
  7. AMIKACIN [Concomitant]
     Active Substance: AMIKACIN
     Dosage: UNK
     Route: 042
     Dates: start: 20160210, end: 20160210
  8. CYRAMZA [Suspect]
     Active Substance: RAMUCIRUMAB
     Indication: GASTRIC CANCER RECURRENT
     Dosage: 8 MG/KG, UNK
     Route: 042
     Dates: start: 20160107, end: 20160107
  9. LYRICA [Concomitant]
     Active Substance: PREGABALIN
     Dosage: 75 MG, BID
     Route: 048
     Dates: start: 20160215
  10. UNASYN [Suspect]
     Active Substance: AMPICILLIN SODIUM\SULBACTAM SODIUM
     Indication: PNEUMONIA
     Dosage: 3 UNK, UNK
     Route: 042
     Dates: start: 20160120, end: 20160125
  11. DICLOFENAC [Concomitant]
     Active Substance: DICLOFENAC
     Dosage: 37.5 MG, BID
     Route: 048
     Dates: start: 20160128, end: 20160213
  12. WYPAX [Concomitant]
     Active Substance: LORAZEPAM
     Indication: ANXIETY
     Dosage: 0.5 MG, TID
     Route: 048
     Dates: end: 20160213
  13. CEFON                              /00672202/ [Concomitant]
     Dosage: UNK
     Route: 042
     Dates: start: 20160210, end: 20160210
  14. CEFON                              /00672202/ [Concomitant]
     Dosage: UNK
     Route: 042
     Dates: start: 20160211, end: 20160211
  15. OPSO [Concomitant]
     Active Substance: MORPHINE HYDROCHLORIDE
     Indication: CANCER PAIN
     Dosage: 5 MG, PRN
     Dates: end: 20160211
  16. PETHIDINE [Concomitant]
     Active Substance: MEPERIDINE
     Dosage: UNK
     Route: 042
     Dates: start: 20160210, end: 20160210
  17. TRYPTANOL                          /00002202/ [Concomitant]
     Active Substance: AMITRIPTYLINE
     Indication: INSOMNIA
     Dosage: 1 DF, UNK
     Route: 048
     Dates: start: 20160215
  18. LYRICA [Concomitant]
     Active Substance: PREGABALIN
     Indication: CANCER PAIN
     Dosage: 75 MG, BID
     Route: 048
     Dates: end: 20160213
  19. AUGMENTAN                          /00756801/ [Suspect]
     Active Substance: AMOXICILLIN\CLAVULANATE POTASSIUM
     Indication: PNEUMONIA
     Dosage: 250 MG, QD
     Route: 048
     Dates: start: 20160126, end: 20160201
  20. AMITIZA [Concomitant]
     Active Substance: LUBIPROSTONE
     Dosage: 24 UG, BID
     Route: 048
  21. MS CONTIN [Concomitant]
     Active Substance: MORPHINE SULFATE
     Indication: CANCER PAIN
     Dosage: 20 MG, BID
     Dates: end: 20160211
  22. MIDAZOLAM [Concomitant]
     Active Substance: MIDAZOLAM\MIDAZOLAM HYDROCHLORIDE
     Dosage: UNK
     Route: 042
     Dates: start: 20160210, end: 20160210
  23. MIDAZOLAM [Concomitant]
     Active Substance: MIDAZOLAM\MIDAZOLAM HYDROCHLORIDE
     Dosage: UNK
     Route: 042
     Dates: start: 20160214, end: 20160214

REACTIONS (3)
  - Hepatic function abnormal [Not Recovered/Not Resolved]
  - Pneumonia [Recovered/Resolved]
  - Malignant neoplasm progression [Fatal]

NARRATIVE: CASE EVENT DATE: 20160120
